FAERS Safety Report 12087016 (Version 1)
Quarter: 2016Q1

REPORT INFORMATION
  Report Type: Spontaneous
  Country: US (occurrence: US)
  Receive Date: 20160217
  Receipt Date: 20160217
  Transmission Date: 20160526
  Serious: No
  Sender: FDA-Public Use
  Company Number: US-ALLERGAN-1506100US

PATIENT
  Sex: Female

DRUGS (2)
  1. RESTASIS [Suspect]
     Active Substance: CYCLOSPORINE
     Dosage: ONE DROP INTO EACH EYE TWICE DAILY
     Route: 047
  2. RESTASIS [Suspect]
     Active Substance: CYCLOSPORINE
     Indication: DRY EYE
     Dosage: ONE DROP INTO EACH EYE ONCE DAILY
     Route: 047

REACTIONS (2)
  - Incorrect dosage administered [Unknown]
  - Ocular hyperaemia [Not Recovered/Not Resolved]
